FAERS Safety Report 5154655-7 (Version None)
Quarter: 2006Q4

REPORT INFORMATION
  Report Type: 
  Country: None (occurrence: None)
  Receive Date: 20061113
  Receipt Date: 20061101
  Transmission Date: 20070319
  Serious: Yes (Hospitalization)
  Sender: FDA-Public Use
  Company Number: 2006116517

PATIENT
  Age: 64 Year
  Sex: Female
  Weight: 44 kg

DRUGS (7)
  1. AROMASIN [Suspect]
     Indication: BREAST CANCER
     Dosage: ORAL
     Route: 048
     Dates: start: 20050411, end: 20060922
  2. XELODA [Suspect]
     Indication: BREAST CANCER
     Dosage: 2400 MG (1200 MG, BID) ORAL
     Route: 048
     Dates: start: 20050411
  3. FENTANYL [Concomitant]
  4. ALOSENN (ACHILLEA, RUBIA ROOT TINCTURE, SENNA FRUIT, SENNA LEAF, TARAX [Concomitant]
  5. ASPIRIN [Concomitant]
  6. RISEDRONATE SODIUM HYDRATE (RISEDRONATE SODIUM) [Concomitant]
  7. MAGNESIUM OXIDE [Concomitant]

REACTIONS (2)
  - NAUSEA [None]
  - WHITE BLOOD CELL COUNT DECREASED [None]
